FAERS Safety Report 16909953 (Version 2)
Quarter: 2020Q3

REPORT INFORMATION
  Report Type: Report from Study
  Country: BE (occurrence: BE)
  Receive Date: 20191011
  Receipt Date: 20191022
  Transmission Date: 20201105
  Serious: Yes (Other)
  Sender: FDA-Public Use
  Company Number: BE-JNJFOC-20191004532

PATIENT
  Age: 74 Year
  Sex: Male

DRUGS (8)
  1. IBRUTINIB [Suspect]
     Active Substance: IBRUTINIB
     Indication: DIFFUSE LARGE B-CELL LYMPHOMA
     Dosage: 560 MG, QD
     Route: 048
     Dates: start: 20190910, end: 20190918
  2. IBRUTINIB [Suspect]
     Active Substance: IBRUTINIB
     Dosage: 560 MG, QD
     Route: 048
     Dates: start: 20190924
  3. LITICAN                            /00690801/ [Concomitant]
     Active Substance: ALIZAPRIDE
     Dosage: UNK
  4. PANTOMED                           /00178901/ [Concomitant]
     Active Substance: DEXPANTHENOL
     Dosage: UNK
  5. ACICLOVIR [Concomitant]
     Active Substance: ACYCLOVIR
     Dosage: UNK
  6. LONCASTUXIMAB TESIRINE. [Suspect]
     Active Substance: LONCASTUXIMAB TESIRINE
     Indication: DIFFUSE LARGE B-CELL LYMPHOMA
     Dosage: 90 MCG, Q 3 WEEKS
     Route: 042
     Dates: start: 20190910, end: 20190910
  7. CEFUROXIME. [Concomitant]
     Active Substance: CEFUROXIME
     Dosage: UNK
  8. FLUCONAZOLE. [Concomitant]
     Active Substance: FLUCONAZOLE
     Dosage: UNK

REACTIONS (3)
  - Anaemia [Not Recovered/Not Resolved]
  - Haematuria [Recovered/Resolved]
  - Thrombocytopenia [Recovered/Resolved]

NARRATIVE: CASE EVENT DATE: 20190916
